FAERS Safety Report 5505029-8 (Version None)
Quarter: 2007Q4

REPORT INFORMATION
  Report Type: 
  Country: None (occurrence: None)
  Receive Date: 20071102
  Receipt Date: 20071029
  Transmission Date: 20080405
  Serious: Yes (Other)
  Sender: FDA-Public Use
  Company Number: US-BRISTOL-MYERS SQUIBB COMPANY-13960513

PATIENT
  Age: 63 Year
  Sex: Male

DRUGS (4)
  1. METFORMIN HCL [Suspect]
     Route: 048
  2. GLYBURIDE [Concomitant]
  3. ALLOPURINOL [Concomitant]
  4. ASPIRIN [Concomitant]

REACTIONS (3)
  - CHOLANGITIS [None]
  - CHOLECYSTITIS CHRONIC [None]
  - HEPATITIS [None]
